FAERS Safety Report 8297457-5 (Version None)
Quarter: 2012Q2

REPORT INFORMATION
  Report Type: 
  Country: None (occurrence: None)
  Receive Date: 20120419
  Receipt Date: 20120409
  Transmission Date: 20120825
  Serious: Yes (Other)
  Sender: FDA-Public Use
  Company Number: US-MYLANLABS-2012S1007501

PATIENT
  Age: 29 Year
  Sex: Female

DRUGS (6)
  1. LOVENOX [Suspect]
  2. LATUDA [Suspect]
     Route: 048
  3. METFORMIN HCL [Suspect]
  4. LEXAPRO [Suspect]
  5. PYRIDOXINE HCL [Suspect]
  6. ASPIRIN [Suspect]

REACTIONS (2)
  - ABORTION SPONTANEOUS [None]
  - MATERNAL EXPOSURE DURING PREGNANCY [None]
